FAERS Safety Report 9097130 (Version 3)
Quarter: 2013Q2

REPORT INFORMATION
  Report Type: Spontaneous
  Country: US (occurrence: AU)
  Receive Date: 20130212
  Receipt Date: 20130417
  Transmission Date: 20140414
  Serious: Yes (Other)
  Sender: FDA-Public Use
  Company Number: AU-009507513-1302AUS002227

PATIENT
  Age: 22 Year
  Sex: Female

DRUGS (5)
  1. IMPLANON [Suspect]
     Dosage: UNK, LEFT ARM
     Dates: start: 20100308
  2. IMPLANON [Suspect]
     Dosage: UNK
     Dates: start: 20100308
  3. IMPLANON [Suspect]
     Dosage: UNK
  4. ENDEP [Concomitant]
     Dosage: UNK, QPM
  5. SERTRALINE HYDROCHLORIDE [Concomitant]

REACTIONS (3)
  - Abortion induced [Unknown]
  - Unintended pregnancy [Unknown]
  - Medical device complication [Unknown]
